FAERS Safety Report 6906397-2 (Version None)
Quarter: 2010Q3

REPORT INFORMATION
  Report Type: 
  Country: None (occurrence: None)
  Receive Date: 20100804
  Receipt Date: 20100727
  Transmission Date: 20110219
  Serious: Yes (Hospitalization)
  Sender: FDA-Public Use
  Company Number: A0873787A

PATIENT
  Age: 49 Year
  Sex: Female

DRUGS (1)
  1. AVANDIA [Suspect]
     Dosage: 4MG TWICE PER DAY
     Route: 048
     Dates: start: 20020501, end: 20080901

REACTIONS (6)
  - CARDIOVASCULAR DISORDER [None]
  - CATHETERISATION CARDIAC [None]
  - CHEST PAIN [None]
  - DIALYSIS [None]
  - DYSPNOEA [None]
  - RENAL FAILURE [None]
